FAERS Safety Report 7364438-5 (Version None)
Quarter: 2011Q1

REPORT INFORMATION
  Report Type: 
  Country: None (occurrence: None)
  Receive Date: 20110321
  Receipt Date: 20110222
  Transmission Date: 20110831
  Serious: No
  Sender: FDA-Public Use
  Company Number: US-B.I. PHARMACEUTICALS,INC./RIDGEFIELD-2011-BP-06591BP

PATIENT
  Sex: Female

DRUGS (2)
  1. SPIRIVA [Concomitant]
     Route: 055
     Dates: start: 20110222
  2. COMBIVENT [Suspect]

REACTIONS (1)
  - DRUG INEFFECTIVE [None]
